FAERS Safety Report 4381299-7 (Version None)
Quarter: 2004Q2

REPORT INFORMATION
  Report Type: 
  Country: None (occurrence: None)
  Receive Date: 20040621
  Receipt Date: 20040608
  Transmission Date: 20050107
  Serious: Yes (Death, Hospitalization, Other)
  Sender: FDA-Public Use
  Company Number: JP-JNJFOC-20040505680

PATIENT
  Sex: Male

DRUGS (3)
  1. LEUSTATIN [Suspect]
     Route: 065
  2. RITUXIMAB [Concomitant]
  3. MITOXANTRONE HYDROCHLORIDE [Concomitant]

REACTIONS (2)
  - BACTERIAL INFECTION [None]
  - INTERSTITIAL LUNG DISEASE [None]
